FAERS Safety Report 7442397-4 (Version None)
Quarter: 2011Q2

REPORT INFORMATION
  Report Type: 
  Country: None (occurrence: None)
  Receive Date: 20110428
  Receipt Date: 20110414
  Transmission Date: 20111010
  Serious: Yes (Hospitalization)
  Sender: FDA-Public Use
  Company Number: DE-ROCHE-766339

PATIENT
  Sex: Female
  Weight: 64 kg

DRUGS (8)
  1. VINORELBIN [Concomitant]
     Dosage: CHEMOTHERAPY WITH FLUOROURACIL WITHOUT RESPONSE.
     Dates: start: 20080101, end: 20080201
  2. FLUOROURACIL [Concomitant]
     Dosage: CHEMOTHERAPY WITH GEMCITABINE WITHOUT RESPONSE.
     Dates: start: 20080201, end: 20080401
  3. DOXORUBICINE [Concomitant]
  4. TAXOTERE [Concomitant]
     Route: 042
     Dates: start: 20080401, end: 20100316
  5. AVASTIN [Suspect]
     Route: 042
     Dates: start: 20080417, end: 20100413
  6. PACLITAXEL [Concomitant]
  7. FLUOROURACIL [Concomitant]
     Dosage: CHEMOTHERAPY WITH VINORELBIN WITHOUT RESPONSE.
     Dates: start: 20080101, end: 20080201
  8. GEMCITABINE [Concomitant]
     Dosage: CHEMOTHERAPY WITH FLUOROURACIL WITHOUT RESPONSE.
     Dates: start: 20080201, end: 20080401

REACTIONS (3)
  - HYPERTENSION [None]
  - CARDIAC FAILURE [None]
  - PLEURAL EFFUSION [None]
